FAERS Safety Report 10441478 (Version 2)
Quarter: 2014Q3

REPORT INFORMATION
  Report Type: Spontaneous
  Country: US (occurrence: US)
  Receive Date: 20140909
  Receipt Date: 20140909
  Transmission Date: 20150326
  Serious: Yes (Hospitalization)
  Sender: FDA-Public Use
  Company Number: US-ACTELION-A-US2014-104786

PATIENT
  Age: 38 Year
  Sex: Female

DRUGS (4)
  1. VENTAVIS [Suspect]
     Active Substance: ILOPROST
     Indication: PULMONARY ARTERIAL HYPERTENSION
     Dosage: ^PURPLE^ 6-9X/DAY
     Route: 055
     Dates: start: 20140818, end: 20140827
  2. ADCIRCA [Concomitant]
     Active Substance: TADALAFIL
  3. REMODULIN [Concomitant]
     Active Substance: TREPROSTINIL
     Dosage: UNK
     Dates: start: 20140825
  4. VENTAVIS [Suspect]
     Active Substance: ILOPROST
     Dosage: ^RED^ 6 TIMES DAILY
     Route: 055
     Dates: start: 20140828

REACTIONS (4)
  - Labour pain [Unknown]
  - Muscle spasms [Unknown]
  - Maternal exposure during pregnancy [Unknown]
  - Uterine hypertonus [Unknown]

NARRATIVE: CASE EVENT DATE: 20140831
